FAERS Safety Report 18506257 (Version 1)
Quarter: 2020Q4

REPORT INFORMATION
  Report Type: Report from Study
  Country: CA (occurrence: CA)
  Receive Date: 20201116
  Receipt Date: 20201116
  Transmission Date: 20210114
  Serious: Yes (Other)
  Sender: FDA-Public Use
  Company Number: CA-SHIRE-CA201936811

PATIENT

DRUGS (4)
  1. HUMAN NORMAL IMMUNOGLOBULIN; LIQUID 20 [Suspect]
     Active Substance: HUMAN IMMUNOGLOBULIN G
     Indication: PRIMARY IMMUNODEFICIENCY SYNDROME
     Dosage: 10 GRAM, 1X/WEEK
     Route: 058
     Dates: start: 20191026
  2. HUMAN NORMAL IMMUNOGLOBULIN; LIQUID 20 [Suspect]
     Active Substance: HUMAN IMMUNOGLOBULIN G
     Indication: MENINGITIS
     Dosage: 6 GRAM, 1/WEEK
     Route: 065
     Dates: start: 20201107
  3. HUMIRA [Concomitant]
     Active Substance: ADALIMUMAB
     Indication: PRODUCT USED FOR UNKNOWN INDICATION
     Dosage: UNK
  4. HUMAN NORMAL IMMUNOGLOBULIN; LIQUID 20 [Suspect]
     Active Substance: HUMAN IMMUNOGLOBULIN G
     Indication: INFERTILITY
     Dosage: 6 GRAM, 1/WEEK
     Route: 065
     Dates: start: 20201107

REACTIONS (10)
  - Injection site rash [Unknown]
  - Nasopharyngitis [Recovered/Resolved]
  - Dry skin [Recovered/Resolved]
  - Eructation [Unknown]
  - Injection site erythema [Recovered/Resolved]
  - Device issue [Unknown]
  - Off label use [Unknown]
  - Injection site pain [Unknown]
  - Needle issue [Unknown]
  - Colonoscopy [Unknown]

NARRATIVE: CASE EVENT DATE: 20191026
